FAERS Safety Report 25715824 (Version 1)
Quarter: 2025Q3

REPORT INFORMATION
  Report Type: Spontaneous
  Country: US (occurrence: None)
  Receive Date: 20250821
  Receipt Date: 20250821
  Transmission Date: 20251020
  Serious: Yes (Disabling, Other)
  Sender: FDA-CTU
  Company Number: None

PATIENT
  Age: 44 Year
  Sex: Female

DRUGS (3)
  1. XCOPRI [Suspect]
     Active Substance: CENOBAMATE
     Indication: Seizure
     Dosage: FREQUENCY : DAILY;?
     Route: 048
  2. CELEXA [Concomitant]
     Active Substance: CITALOPRAM HYDROBROMIDE
  3. LAMOTRIGINE [Concomitant]
     Active Substance: LAMOTRIGINE

REACTIONS (9)
  - Drug interaction [None]
  - Fall [None]
  - Head injury [None]
  - Skull fracture [None]
  - Craniocerebral injury [None]
  - Cerebrovascular accident [None]
  - Gait inability [None]
  - Dysstasia [None]
  - Muscle contracture [None]

NARRATIVE: CASE EVENT DATE: 20250521
